FAERS Safety Report 16078129 (Version 1)
Quarter: 2019Q2

REPORT INFORMATION
  Report Type: Spontaneous
  Country: US (occurrence: US)
  Receive Date: 20190315
  Receipt Date: 20190315
  Transmission Date: 20190711
  Serious: Yes (Death)
  Sender: FDA-Public Use
  Company Number: None

PATIENT
  Age: 76 Year
  Sex: Female

DRUGS (7)
  1. DEXAMETHASON TAB 4MG [Concomitant]
     Active Substance: DEXAMETHASONE
  2. MAGNESIUM CAP 300MG [Concomitant]
  3. CYCLOPHOSPHAMIDE. [Suspect]
     Active Substance: CYCLOPHOSPHAMIDE
     Indication: OVARIAN CANCER
     Route: 048
     Dates: start: 20180620, end: 20190121
  4. OXYCODONE TAB 5MG [Concomitant]
     Active Substance: OXYCODONE
  5. LORAZEPAM TAB 0.5MG [Concomitant]
  6. ZOFRAN TAB 8MG [Concomitant]
  7. POTASSIUM TAB 99MG [Concomitant]

REACTIONS (1)
  - Death [None]

NARRATIVE: CASE EVENT DATE: 20190121
